FAERS Safety Report 17782414 (Version 1)
Quarter: 2020Q2

REPORT INFORMATION
  Report Type: Spontaneous
  Country: US (occurrence: US)
  Receive Date: 20200514
  Receipt Date: 20200514
  Transmission Date: 20200714
  Serious: Yes (Life-Threatening, Hospitalization)
  Sender: FDA-Public Use
  Company Number: None

PATIENT
  Age: 24 Year
  Sex: Female
  Weight: 60.75 kg

DRUGS (5)
  1. MACROBID 100MG BID [Concomitant]
  2. OMEPRAZOLE. [Concomitant]
     Active Substance: OMEPRAZOLE
  3. ZYRTEC [Concomitant]
     Active Substance: CETIRIZINE HYDROCHLORIDE
  4. BACTRIM DS [Suspect]
     Active Substance: SULFAMETHOXAZOLE\TRIMETHOPRIM
     Indication: CELLULITIS
     Dates: start: 20190926, end: 20191008
  5. DESIPRAMINE 25MG TAB TID [Concomitant]

REACTIONS (9)
  - Bronchial mucosa hyperaemia [None]
  - Dyspnoea [None]
  - Respiratory failure [None]
  - Lung infiltration [None]
  - Respiratory distress [None]
  - Cough [None]
  - Hypoxia [None]
  - Pulmonary oedema [None]
  - Pneumomediastinum [None]

NARRATIVE: CASE EVENT DATE: 20191008
